FAERS Safety Report 8780547 (Version 5)
Quarter: 2013Q2

REPORT INFORMATION
  Report Type: Spontaneous
  Country: US (occurrence: US)
  Receive Date: 20120913
  Receipt Date: 20130419
  Transmission Date: 20140414
  Serious: Yes (Other)
  Sender: FDA-Public Use
  Company Number: US-PFIZER INC-2012222497

PATIENT
  Age: 78 Year
  Sex: Female

DRUGS (20)
  1. GLUCOTROL XL [Suspect]
     Indication: DIABETES MELLITUS
     Dosage: 2.5 MG, 1X/DAY
     Route: 048
     Dates: start: 200906
  2. GLUCOTROL XL [Suspect]
     Dosage: 2.5 MG, 1X/DAY
  3. FOLIC ACID [Concomitant]
     Dosage: 1 MG, 1X/DAY (QD)
  4. REMICADE [Concomitant]
     Dosage: UNK, Q 6-8 WKS
  5. PREDNISONE [Concomitant]
     Dosage: 2.5 MG, 1X/DAY (QD)
  6. METHOTREXATE [Concomitant]
     Dosage: 10 MG, (2.5 MG X 4 Q MONDAYS)
  7. ASA [Concomitant]
     Dosage: 81 MG, 1X/DAY (QD)
  8. GLIPIZIDE (ER) [Concomitant]
     Dosage: 2.5 UNK, 1X/DAY
  9. LESCOL [Concomitant]
     Dosage: 40 UNK, 2X/DAY
  10. FIORICET [Concomitant]
     Dosage: UNK, 4X/DAY
  11. ATENOLOL [Concomitant]
     Dosage: 100 MG, 1X/DAY
  12. DIOVAN [Concomitant]
     Dosage: 80 UNK, 1X/DAY
  13. NITROGLYCERIN [Concomitant]
     Dosage: UNK, AS NEEDED
  14. ISOSORBIDE MONONITRATE [Concomitant]
     Dosage: 60 UNK, 1X/DAY
  15. CLOPIDOGREL [Concomitant]
     Dosage: UNK
  16. PEPCID [Concomitant]
     Dosage: UNK
  17. VITAMIN D [Concomitant]
     Dosage: UNK
  18. CALCIUM [Concomitant]
     Dosage: UNK
  19. DILTIAZEM [Concomitant]
     Dosage: UNK
  20. ISOSORBIDE DINITRATE [Concomitant]

REACTIONS (6)
  - Cardiac disorder [Not Recovered/Not Resolved]
  - Myocardial infarction [Unknown]
  - Rheumatoid arthritis [Unknown]
  - Sinus disorder [Not Recovered/Not Resolved]
  - Nasopharyngitis [Not Recovered/Not Resolved]
  - Arthritis [Recovering/Resolving]
